FAERS Safety Report 17022451 (Version 1)
Quarter: 2019Q4

REPORT INFORMATION
  Report Type: Report from Study
  Country: CN (occurrence: CN)
  Receive Date: 20191112
  Receipt Date: 20191112
  Transmission Date: 20200122
  Serious: Yes (Hospitalization, Other)
  Sender: FDA-Public Use
  Company Number: CN-PFIZER INC-2019482225

PATIENT
  Age: 67 Year
  Sex: Male

DRUGS (4)
  1. VORICONAZOLE. [Suspect]
     Active Substance: VORICONAZOLE
     Indication: BRONCHOPULMONARY ASPERGILLOSIS
  2. VORICONAZOLE. [Suspect]
     Active Substance: VORICONAZOLE
     Indication: BRONCHOPULMONARY ASPERGILLOSIS
  3. VORICONAZOLE. [Suspect]
     Active Substance: VORICONAZOLE
     Indication: TRACHEOBRONCHITIS
     Dosage: UNK
     Route: 042
     Dates: start: 20171002, end: 20171018
  4. VORICONAZOLE. [Suspect]
     Active Substance: VORICONAZOLE
     Indication: TRACHEOBRONCHITIS
     Dosage: UNK
     Route: 048
     Dates: start: 20171018, end: 20180102

REACTIONS (2)
  - Pathogen resistance [Recovered/Resolved]
  - Scopulariopsis infection [Recovered/Resolved]

NARRATIVE: CASE EVENT DATE: 201801
